FAERS Safety Report 4681813-8 (Version None)
Quarter: 2005Q2

REPORT INFORMATION
  Report Type: 
  Country: None (occurrence: None)
  Receive Date: 20050602
  Receipt Date: 20050519
  Transmission Date: 20051028
  Serious: Yes (Other)
  Sender: FDA-Public Use
  Company Number: 2005S1000154

PATIENT
  Age: 43 Year
  Sex: Male

DRUGS (2)
  1. ACITRECIN (ACITRETIN) (25 MG) [Suspect]
     Indication: PSORIASIS
     Dosage: 25 MG; QD; PO
     Route: 048
     Dates: start: 20030601, end: 20050323
  2. PROPRAL [Concomitant]

REACTIONS (2)
  - DEEP VEIN THROMBOSIS [None]
  - TREATMENT NONCOMPLIANCE [None]
